FAERS Safety Report 20513152 (Version 1)
Quarter: 2022Q1

REPORT INFORMATION
  Report Type: Spontaneous
  Country: US (occurrence: US)
  Receive Date: 20220224
  Receipt Date: 20220224
  Transmission Date: 20220423
  Serious: No
  Sender: FDA-Public Use
  Company Number: US-AMNEAL PHARMACEUTICALS-2021-AMRX-01264

PATIENT
  Sex: Male

DRUGS (2)
  1. RYTARY [Suspect]
     Active Substance: CARBIDOPA\LEVODOPA
     Indication: Parkinson^s disease
     Dosage: 9 CAPSULES, DAILY (, 2 CAPSULES AT 8AM, 11AM, 2PM, AND 5PM AND 1 CAPSULE AT BEDTIME)
     Route: 048
  2. RYTARY [Suspect]
     Active Substance: CARBIDOPA\LEVODOPA
     Dosage: 14 CAPSULES, DAILY (3 CAP AT 7AM AND 2PM, 2 CAP AT 11AM, 5PM, 10PM AND IN MIDDLE OF NIGHT IF AWAKE)
     Route: 048
     Dates: start: 20210430, end: 2021

REACTIONS (3)
  - Dysgraphia [Unknown]
  - Feeling jittery [Unknown]
  - Therapy cessation [Unknown]

NARRATIVE: CASE EVENT DATE: 20210101
